FAERS Safety Report 10275045 (Version 2)
Quarter: 2014Q3

REPORT INFORMATION
  Report Type: Spontaneous
  Country: FI (occurrence: FI)
  Receive Date: 20140703
  Receipt Date: 20140714
  Transmission Date: 20150326
  Serious: No
  Sender: FDA-Public Use
  Company Number: FI-UCBSA-2014000236

PATIENT
  Age: 29 Year
  Sex: Female

DRUGS (3)
  1. NAPROMETIN [Concomitant]
     Indication: SPONDYLITIS
     Dosage: 500 MG 1-2/DAY
  2. SALAZOPYRIN [Concomitant]
     Active Substance: SULFASALAZINE
     Dosage: EN3 FOR 3 YEARS , UNK
  3. CIMZIA [Suspect]
     Active Substance: CERTOLIZUMAB PEGOL
     Indication: SPONDYLITIS
     Dosage: 400 MG, EV 2 WEEKS(QOW), 3 LOADING DOSES
     Dates: start: 20140417, end: 20140523

REACTIONS (2)
  - Eczema [Unknown]
  - Hypersensitivity [Unknown]

NARRATIVE: CASE EVENT DATE: 201405
